FAERS Safety Report 4853657-5 (Version None)
Quarter: 2005Q4

REPORT INFORMATION
  Report Type: 
  Country: None (occurrence: None)
  Receive Date: 20051212
  Receipt Date: 20051116
  Transmission Date: 20060501
  Serious: Yes (Hospitalization)
  Sender: FDA-Public Use
  Company Number: 2005-00511

PATIENT
  Age: 45 Year
  Sex: Male
  Weight: 59 kg

DRUGS (9)
  1. VELCADE [Suspect]
     Indication: MULTIPLE MYELOMA
     Dosage: 1.00 MG, INTRAVENOUS
     Route: 042
     Dates: start: 20040929, end: 20050204
  2. GABAPENTIN [Concomitant]
  3. COLACE (DOCUSATE SODIUM) [Concomitant]
  4. FLUCONAZOLE [Concomitant]
  5. SENOKOT [Concomitant]
  6. TYLENOL W/ CODEINE [Concomitant]
  7. MORPHINE SULFATE [Concomitant]
  8. AMITRIPTYLINE (AMITRIPTYLINE) [Concomitant]
  9. PAMIDRONATE DISODIUM [Concomitant]

REACTIONS (15)
  - ASPARTATE AMINOTRANSFERASE INCREASED [None]
  - BLOOD ALKALINE PHOSPHATASE INCREASED [None]
  - BLOOD BILIRUBIN INCREASED [None]
  - BLOOD CREATININE INCREASED [None]
  - BLOOD LACTATE DEHYDROGENASE INCREASED [None]
  - BLOOD POTASSIUM DECREASED [None]
  - CONDITION AGGRAVATED [None]
  - CONFUSIONAL STATE [None]
  - DEHYDRATION [None]
  - DISORIENTATION [None]
  - DYSARTHRIA [None]
  - HEPATOMEGALY [None]
  - HYPERCALCAEMIA [None]
  - MALAISE [None]
  - PANCYTOPENIA [None]
